FAERS Safety Report 8136890-9 (Version None)
Quarter: 2012Q1

REPORT INFORMATION
  Report Type: 
  Country: None (occurrence: None)
  Receive Date: 20120214
  Receipt Date: 20120209
  Transmission Date: 20120608
  Serious: Yes (Death, Hospitalization, Other)
  Sender: FDA-Public Use
  Company Number: PHHY2011CA21140

PATIENT
  Sex: Male

DRUGS (1)
  1. EXJADE [Suspect]
     Indication: MYELODYSPLASTIC SYNDROME
     Dosage: 1500 MG, UNK
     Route: 048
     Dates: start: 20081001

REACTIONS (4)
  - DEATH [None]
  - INCOHERENT [None]
  - FALL [None]
  - HIP FRACTURE [None]
